FAERS Safety Report 9650861 (Version 1)
Quarter: 2013Q4

REPORT INFORMATION
  Report Type: Spontaneous
  Country: FR (occurrence: FR)
  Receive Date: 20131029
  Receipt Date: 20131029
  Transmission Date: 20140711
  Serious: Yes (Other)
  Sender: FDA-Public Use
  Company Number: FR-JNJFOC-20131016477

PATIENT
  Age: 74 Year
  Sex: Male
  Weight: 82 kg

DRUGS (7)
  1. XARELTO [Suspect]
     Indication: ATRIAL FIBRILLATION
     Route: 048
     Dates: start: 20130107
  2. XARELTO [Suspect]
     Indication: CEREBROVASCULAR ACCIDENT PROPHYLAXIS
     Route: 048
     Dates: start: 20130107
  3. NIFEDIPINE [Concomitant]
     Indication: CORONARY ARTERY INSUFFICIENCY
     Route: 065
     Dates: start: 2008
  4. OMEPRAZOLE [Concomitant]
     Indication: GASTROOESOPHAGEAL REFLUX DISEASE
     Route: 065
  5. HEMIGOXINE [Concomitant]
     Indication: ATRIAL FIBRILLATION
     Route: 065
     Dates: start: 2007
  6. KERLONE [Concomitant]
     Indication: CORONARY ARTERY INSUFFICIENCY
     Route: 065
     Dates: start: 2008
  7. KERLONE [Concomitant]
     Indication: HYPERTENSION
     Route: 065
     Dates: start: 2008

REACTIONS (2)
  - Gait disturbance [Not Recovered/Not Resolved]
  - Asthenia [Not Recovered/Not Resolved]
